FAERS Safety Report 13239373 (Version 1)
Quarter: 2017Q1

REPORT INFORMATION
  Report Type: Spontaneous
  Country: GB (occurrence: GB)
  Receive Date: 20170216
  Receipt Date: 20170216
  Transmission Date: 20170428
  Serious: Yes (Other)
  Sender: FDA-Public Use
  Company Number: GB-TEVA-740858ACC

PATIENT
  Age: 30 Year
  Sex: Male
  Weight: 64 kg

DRUGS (8)
  1. AMITRIPTYLINE HYDROCHLORIDE. [Concomitant]
     Active Substance: AMITRIPTYLINE HYDROCHLORIDE
     Dosage: 2 DOSAGE FORMS DAILY;
     Dates: start: 20160928, end: 20161121
  2. BUSCOPAN [Concomitant]
     Active Substance: BUTYLSCOPOLAMINE BROMIDE
     Dosage: 8 DOSAGE FORMS DAILY;
     Dates: start: 20160517
  3. NAPROXEN. [Concomitant]
     Active Substance: NAPROXEN
     Dosage: 2 DOSAGE FORMS DAILY;
     Dates: start: 20161121, end: 20161219
  4. NORTRIPTYLINE [Concomitant]
     Active Substance: NORTRIPTYLINE
     Dosage: AS DIRECTED.
     Dates: start: 20161121, end: 20161122
  5. ZAPAIN [Concomitant]
     Active Substance: ACETAMINOPHEN\CODEINE PHOSPHATE
     Dosage: 1-2 UP TO 4 TIMES DAILY.
     Dates: start: 20160928
  6. GABAPENTIN. [Concomitant]
     Active Substance: GABAPENTIN
     Dosage: TAKE AS DIRECTED, REDUCING REGIME.
     Dates: start: 20161121, end: 20161219
  7. DULOXETINE. [Suspect]
     Active Substance: DULOXETINE
     Dosage: 3 DOSES.
     Dates: start: 20170126
  8. COCODAMOL [Concomitant]
     Active Substance: ACETAMINOPHEN\CODEINE PHOSPHATE
     Dosage: TAKE 1 OR 2 EVERY 4-6 HOURS WHEN REQUIRED.
     Dates: start: 20170126

REACTIONS (1)
  - Penile swelling [Recovered/Resolved]

NARRATIVE: CASE EVENT DATE: 20170130
